FAERS Safety Report 18704352 (Version 1)
Quarter: 2021Q1

REPORT INFORMATION
  Report Type: Spontaneous
  Country: US (occurrence: US)
  Receive Date: 20210106
  Receipt Date: 20210106
  Transmission Date: 20210419
  Serious: Yes (Death, Hospitalization, Other)
  Sender: FDA-Public Use
  Company Number: US-ABBVIE-21K-163-3717043-00

PATIENT
  Age: 80 Year
  Sex: Male
  Weight: 113.5 kg

DRUGS (4)
  1. IMBRUVICA [Suspect]
     Active Substance: IBRUTINIB
     Indication: BRAIN NEOPLASM MALIGNANT
     Route: 048
     Dates: start: 202007, end: 20201224
  2. KEYTRUDA [Concomitant]
     Active Substance: PEMBROLIZUMAB
     Indication: INFUSION
     Dates: end: 20201224
  3. LOSARTAN. [Concomitant]
     Active Substance: LOSARTAN
     Indication: HYPERTENSION
     Dates: end: 20201224
  4. AMLODIPINE [Concomitant]
     Active Substance: AMLODIPINE BESYLATE
     Indication: HYPERTENSION
     Dates: end: 20201224

REACTIONS (7)
  - Brain neoplasm malignant [Fatal]
  - Lung neoplasm malignant [Fatal]
  - Fall [Recovered/Resolved]
  - Lymphatic system neoplasm [Fatal]
  - Head injury [Recovered/Resolved]
  - Aortic aneurysm [Unknown]
  - Nail operation [Recovered/Resolved]

NARRATIVE: CASE EVENT DATE: 202012
